FAERS Safety Report 24184229 (Version 2)
Quarter: 2024Q4

REPORT INFORMATION
  Report Type: Spontaneous
  Country: US (occurrence: US)
  Receive Date: 20240807
  Receipt Date: 20241122
  Transmission Date: 20250114
  Serious: Yes (Other)
  Sender: PFIZER
  Company Number: US-PFIZER INC-PV202300126216

PATIENT
  Age: 78 Year
  Sex: Female
  Weight: 56.689 kg

DRUGS (1)
  1. XELJANZ XR [Suspect]
     Active Substance: TOFACITINIB CITRATE
     Indication: Rheumatoid arthritis
     Dosage: 11 MG, 1X/DAY
     Dates: start: 201909

REACTIONS (4)
  - Forearm fracture [Unknown]
  - Hypoaesthesia [Unknown]
  - Paraesthesia [Unknown]
  - Osteoarthritis [Unknown]
